FAERS Safety Report 6648705-6 (Version None)
Quarter: 2010Q1

REPORT INFORMATION
  Report Type: 
  Country: None (occurrence: None)
  Receive Date: 20100324
  Receipt Date: 20100312
  Transmission Date: 20100710
  Serious: Yes (Death, Other)
  Sender: FDA-Public Use
  Company Number: JP-PFIZER INC-2010028647

PATIENT
  Age: 59 Year
  Sex: Male

DRUGS (10)
  1. RIFABUTIN [Suspect]
     Indication: MYCOBACTERIUM AVIUM COMPLEX INFECTION
     Dosage: 150 UNK, 1X/DAY
     Route: 048
     Dates: start: 20090904, end: 20100101
  2. TRANSAMIN [Concomitant]
     Route: 048
     Dates: end: 20100101
  3. RISPERDAL [Concomitant]
     Route: 048
     Dates: end: 20100101
  4. MEDICON [Concomitant]
     Dates: end: 20100101
  5. HOKUNALIN [Concomitant]
     Route: 062
     Dates: end: 20100101
  6. CRAVIT [Concomitant]
     Route: 048
     Dates: start: 20090917, end: 20091129
  7. CLARITH [Concomitant]
     Route: 048
     Dates: start: 20090917, end: 20100101
  8. EBUTOL [Concomitant]
     Route: 048
     Dates: start: 20090917, end: 20100101
  9. THEOPHYLLINE [Concomitant]
     Route: 048
     Dates: start: 20090917, end: 20100101
  10. AVELOX [Concomitant]
     Indication: MYCOBACTERIUM AVIUM COMPLEX INFECTION
     Route: 048
     Dates: start: 20091130, end: 20100101

REACTIONS (1)
  - ASPHYXIA [None]
